APPROVED DRUG PRODUCT: SODIUM IODIDE I 123
Active Ingredient: SODIUM IODIDE I-123
Strength: 200uCi
Dosage Form/Route: CAPSULE;ORAL
Application: A071910 | Product #001 | TE Code: AA
Applicant: CURIUM US LLC
Approved: Feb 28, 1989 | RLD: No | RS: No | Type: RX